FAERS Safety Report 16865841 (Version 1)
Quarter: 2019Q3

REPORT INFORMATION
  Report Type: Spontaneous
  Country: US (occurrence: US)
  Receive Date: 20190930
  Receipt Date: 20190930
  Transmission Date: 20191005
  Serious: Yes (Death)
  Sender: FDA-Public Use
  Company Number: US-ALLERGAN-1846906US

PATIENT
  Age: 47 Year
  Sex: Male

DRUGS (3)
  1. VRAYLAR [Suspect]
     Active Substance: CARIPRAZINE
     Indication: DEPRESSION
     Dosage: 1.5 MG, QD
     Route: 048
     Dates: start: 20180723
  2. VRAYLAR [Suspect]
     Active Substance: CARIPRAZINE
     Indication: ANXIETY
     Dosage: 4.5 MG, QD
     Route: 048
     Dates: start: 2018
  3. TESTOSTERON [Concomitant]
     Active Substance: TESTOSTERONE
     Indication: STEROID THERAPY
     Dosage: HIGH DOSES

REACTIONS (1)
  - Completed suicide [Fatal]

NARRATIVE: CASE EVENT DATE: 201809
